FAERS Safety Report 8464795-2 (Version None)
Quarter: 2012Q2

REPORT INFORMATION
  Report Type: 
  Country: None (occurrence: None)
  Receive Date: 20120626
  Receipt Date: 20120614
  Transmission Date: 20120825
  Serious: No
  Sender: FDA-Public Use
  Company Number: BR-US-EMD SERONO, INC.-7136357

PATIENT
  Sex: Female

DRUGS (8)
  1. ASPIRIN [Suspect]
     Indication: ANTICOAGULANT THERAPY
  2. CYMBALTA [Concomitant]
     Indication: PANIC DISORDER
  3. ATACAND [Concomitant]
     Indication: HYPERTENSION
  4. CLONAZEPAM [Concomitant]
     Indication: SLEEP DISORDER
  5. METOPROLOL SUCCINATE [Concomitant]
     Indication: HYPERTENSION
  6. REBIF [Suspect]
     Indication: RELAPSING-REMITTING MULTIPLE SCLEROSIS
     Dates: start: 20111101
  7. METFORMIN HYDROCHLORIDE [Concomitant]
     Indication: DIABETES MELLITUS
  8. NEXIUM [Concomitant]
     Indication: ABDOMINAL DISCOMFORT

REACTIONS (4)
  - HEPATIC STEATOSIS [None]
  - INTESTINAL POLYP [None]
  - OESOPHAGITIS [None]
  - GASTRITIS [None]
